FAERS Safety Report 6550531-3 (Version None)
Quarter: 2010Q1

REPORT INFORMATION
  Report Type: 
  Country: None (occurrence: None)
  Receive Date: 20100125
  Receipt Date: 20100119
  Transmission Date: 20100710
  Serious: Yes (Death)
  Sender: FDA-Public Use
  Company Number: B0627221A

PATIENT
  Sex: Female

DRUGS (10)
  1. PAROXETINE HCL [Suspect]
     Indication: DEPRESSION
     Dosage: 20MG PER DAY
     Route: 048
     Dates: end: 20090729
  2. ARICEPT [Suspect]
     Dosage: 10MG PER DAY
     Route: 048
     Dates: start: 20050201, end: 20090729
  3. KARDEGIC [Suspect]
     Indication: DRUG USE FOR UNKNOWN INDICATION
     Dosage: 75MG PER DAY
     Route: 048
     Dates: end: 20090729
  4. HYPERIUM [Concomitant]
     Dosage: 1MG PER DAY
     Route: 048
     Dates: end: 20090729
  5. RIVOTRIL [Concomitant]
     Indication: ANXIETY
     Dosage: .5MG PER DAY
     Route: 048
     Dates: end: 20090729
  6. ARIMIDEX [Concomitant]
     Dosage: 1MG PER DAY
     Route: 048
     Dates: end: 20090729
  7. LASILIX [Concomitant]
     Dosage: 40MG PER DAY
     Route: 065
  8. NEBILOX [Concomitant]
     Route: 065
  9. MICARDIS [Concomitant]
     Route: 065
  10. IMODIUM [Concomitant]
     Route: 065

REACTIONS (1)
  - HAEMORRHAGE [None]
